FAERS Safety Report 9970925 (Version 2)
Quarter: 2014Q1

REPORT INFORMATION
  Report Type: Report from Study
  Country: US (occurrence: US)
  Receive Date: 20140306
  Receipt Date: 20140306
  Transmission Date: 20141002
  Serious: No
  Sender: FDA-Public Use
  Company Number: US-ABBVIE-13P-163-1142262-00

PATIENT
  Age: 41 Year
  Sex: Female

DRUGS (17)
  1. HUMIRA [Suspect]
     Indication: CROHN^S DISEASE
     Dates: start: 20130705, end: 20130705
  2. HUMIRA [Suspect]
     Dates: start: 20130719
  3. HUMIRA [Suspect]
     Dates: start: 20130802, end: 20130912
  4. LEXAPRO [Concomitant]
     Indication: DEPRESSION
     Dosage: IN MORNING
  5. LEXAPRO [Concomitant]
     Indication: ANXIETY
  6. WELLBUTRIN [Concomitant]
     Indication: DEPRESSION
     Dosage: IN MORNING
  7. WELLBUTRIN [Concomitant]
     Indication: ANXIETY
  8. XANAX [Concomitant]
     Indication: DEPRESSION
     Dosage: 1.5 AT NIGHT
  9. XANAX [Concomitant]
     Indication: ANXIETY
  10. HYDROCODONE [Concomitant]
     Indication: PAIN
     Dosage: 10/325 1/2 TAB EVERY 4-6 HOURS
  11. HYDROCORTISONE [Concomitant]
     Indication: INTESTINAL STENOSIS
     Dosage: 25 MG AT NIGHT
  12. HYDROCORTISONE [Concomitant]
     Indication: CONSTIPATION
  13. MULTIVITAMIN [Concomitant]
     Indication: VITAMIN SUPPLEMENTATION
     Dosage: DAILY
  14. CALCIUM MAGNESIUM ZINC [Concomitant]
     Indication: MINERAL SUPPLEMENTATION
  15. VITAMIN D [Concomitant]
     Indication: VITAMIN SUPPLEMENTATION
     Dosage: 5000 UNITS DAILY
  16. FOLIC ACID [Concomitant]
     Indication: ALOPECIA
  17. FOLIC ACID [Concomitant]
     Indication: ONYCHOCLASIS

REACTIONS (4)
  - Fatigue [Not Recovered/Not Resolved]
  - Arthritis [Not Recovered/Not Resolved]
  - Somnolence [Not Recovered/Not Resolved]
  - Oropharyngeal pain [Not Recovered/Not Resolved]
